FAERS Safety Report 18561093 (Version 10)
Quarter: 2025Q2

REPORT INFORMATION
  Report Type: Report from Study
  Country: US (occurrence: US)
  Receive Date: 20201130
  Receipt Date: 20250418
  Transmission Date: 20250717
  Serious: Yes (Hospitalization, Other)
  Sender: TAKEDA
  Company Number: US-SHIRE-US201912401AA

PATIENT
  Sex: Female

DRUGS (2)
  1. HUMAN IMMUNOGLOBULIN G [Suspect]
     Active Substance: HUMAN IMMUNOGLOBULIN G
     Indication: Primary immunodeficiency syndrome
  2. HUMAN IMMUNOGLOBULIN G [Suspect]
     Active Substance: HUMAN IMMUNOGLOBULIN G
     Indication: Immunodeficiency common variable

REACTIONS (21)
  - Staphylococcal infection [Unknown]
  - Myelitis [Unknown]
  - Osteomyelitis [Unknown]
  - Infection [Unknown]
  - Sepsis [Unknown]
  - Pneumonia pseudomonal [Unknown]
  - Device related infection [Unknown]
  - Pneumonia staphylococcal [Unknown]
  - Lung disorder [Recovering/Resolving]
  - Gait disturbance [Unknown]
  - Wrong technique in device usage process [Unknown]
  - Fall [Unknown]
  - Eye contusion [Unknown]
  - Device physical property issue [Unknown]
  - Localised infection [Unknown]
  - Weight decreased [Unknown]
  - Device occlusion [Unknown]
  - Pain [Unknown]
  - Malaise [Unknown]
  - Headache [Unknown]
  - Arthralgia [Unknown]
